FAERS Safety Report 4963438-X (Version None)
Quarter: 2006Q1

REPORT INFORMATION
  Report Type: 
  Country: None (occurrence: None)
  Receive Date: 20060330
  Receipt Date: 20060315
  Transmission Date: 20060701
  Serious: No
  Sender: FDA-Public Use
  Company Number: US200603003878

PATIENT
  Age: 62 Year
  Sex: Male

DRUGS (2)
  1. CIALIS [Suspect]
     Indication: ERECTILE DYSFUNCTION
     Dosage: 20 MG
     Dates: start: 20050101
  2. ALBUTEROL [Concomitant]

REACTIONS (4)
  - CHRONIC OBSTRUCTIVE PULMONARY DISEASE [None]
  - CONDITION AGGRAVATED [None]
  - DYSPNOEA EXERTIONAL [None]
  - OPTIC NERVE CUP/DISC RATIO DECREASED [None]
